FAERS Safety Report 16459096 (Version 1)
Quarter: 2019Q2

REPORT INFORMATION
  Report Type: Spontaneous
  Country: US (occurrence: US)
  Receive Date: 20190620
  Receipt Date: 20190620
  Transmission Date: 20190711
  Serious: Yes (Death)
  Sender: FDA-Public Use
  Company Number: US-CATALYST PHARMACEUTICALS, INC-2019CAT00195

PATIENT
  Age: 70 Year
  Sex: Female
  Weight: 81.63 kg

DRUGS (3)
  1. FIRDAPSE [Suspect]
     Active Substance: AMIFAMPRIDINE
     Indication: MYASTHENIC SYNDROME
     Dosage: 2 TABLETS, 3X/DAY
     Route: 048
  2. FIRDAPSE [Suspect]
     Active Substance: AMIFAMPRIDINE
     Dosage: 1 TABLETS, UP TO 1X/DAY AS NEEDED IN THE MORNING
     Route: 048
  3. 18 UNSPECIFIED MEDICATIONS [Concomitant]

REACTIONS (2)
  - Breast cancer stage IV [Fatal]
  - Pneumonia [Fatal]

NARRATIVE: CASE EVENT DATE: 201812
